FAERS Safety Report 6871922-7 (Version None)
Quarter: 2010Q3

REPORT INFORMATION
  Report Type: 
  Country: None (occurrence: None)
  Receive Date: 20100723
  Receipt Date: 20100715
  Transmission Date: 20110219
  Serious: Yes (Hospitalization)
  Sender: FDA-Public Use
  Company Number: CA-JNJFOC-20080900030

PATIENT
  Age: 56 Year
  Sex: Female
  Weight: 85 kg

DRUGS (9)
  1. DOXORUBICIN HCL [Suspect]
     Indication: BREAST CANCER
     Dosage: ARM B
     Route: 042
  2. HERCEPTIN [Suspect]
     Indication: BREAST CANCER
     Dosage: CYCLE 1, ARM B
     Route: 042
  3. HERCEPTIN [Suspect]
     Route: 042
  4. TAXOL [Suspect]
     Indication: BREAST CANCER
     Route: 042
  5. CYCLOPHOSPHAMIDE [Suspect]
     Indication: BREAST CANCER
     Route: 065
  6. REACTINE [Concomitant]
     Indication: ALLERGY PROPHYLAXIS
     Route: 048
  7. LORAZEPAM [Concomitant]
     Indication: SLEEP DISORDER
     Route: 048
  8. MULTI-VITAMINS [Concomitant]
     Indication: PROPHYLAXIS
     Route: 048
  9. OXAZEPAM [Concomitant]
     Indication: INSOMNIA
     Route: 048

REACTIONS (3)
  - ANAEMIA [None]
  - CELLULITIS [None]
  - PYREXIA [None]
